FAERS Safety Report 13960173 (Version 1)
Quarter: 2017Q3

REPORT INFORMATION
  Report Type: Spontaneous
  Country: IS (occurrence: IS)
  Receive Date: 20170912
  Receipt Date: 20170912
  Transmission Date: 20171128
  Serious: Yes (Congenital Anomaly)
  Sender: FDA-Public Use
  Company Number: IS-TEVA-803171ISR

PATIENT
  Age: 64 Year
  Sex: Male

DRUGS (4)
  1. RISOLID 25MG [Concomitant]
     Indication: ANXIETY DISORDER
     Dosage: 75 MILLIGRAM DAILY; 1 X 3
  2. QUETIAPIN ORION 25 MG [Concomitant]
     Dosage: 75 MILLIGRAM DAILY; 3 TABLETS BEFORE SLEEP
  3. FLUOXETIN ACTAVIS 20 MG [Concomitant]
     Dosage: 2 CAPSULES EACH DAY
  4. GABAPENTIN RATIOPHARM 300 MG CAPSULES, HARD [Suspect]
     Active Substance: GABAPENTIN
     Indication: SCIATICA
     Dosage: 2700 MILLIGRAM DAILY; 3 X 3
     Dates: start: 20151101

REACTIONS (3)
  - Dizziness [Not Recovered/Not Resolved]
  - Back pain [Not Recovered/Not Resolved]
  - Developmental hip dysplasia [Not Recovered/Not Resolved]
